FAERS Safety Report 6020473-0 (Version None)
Quarter: 2008Q4

REPORT INFORMATION
  Report Type: 
  Country: None (occurrence: None)
  Receive Date: 20081222
  Receipt Date: 20081205
  Transmission Date: 20090506
  Serious: Yes (Death)
  Sender: FDA-Public Use
  Company Number: 1000003184

PATIENT
  Age: 76 Year
  Sex: Male

DRUGS (5)
  1. LEXAPRO [Suspect]
     Dosage: 10 MG (10 MG, 1IN 1 D),ORAL
     Route: 048
     Dates: start: 20081203
  2. TEMAZEPAM [Concomitant]
  3. OXAZEPAM [Concomitant]
  4. DORMICUM (TABLETS) [Concomitant]
  5. NEXIUM (TABLETS) [Concomitant]

REACTIONS (1)
  - COMPLETED SUICIDE [None]
